FAERS Safety Report 7914340-2 (Version None)
Quarter: 2011Q4

REPORT INFORMATION
  Report Type: 
  Country: None (occurrence: None)
  Receive Date: 20111115
  Receipt Date: 20111110
  Transmission Date: 20120403
  Serious: Yes (Life-Threatening, Hospitalization)
  Sender: FDA-Public Use
  Company Number: NZ-B.I. PHARMACEUTICALS,INC./RIDGEFIELD-2011-AU-01657AU

PATIENT
  Sex: Female
  Weight: 80 kg

DRUGS (5)
  1. GLICLAZIDE [Concomitant]
     Dosage: 80 MG
  2. CAPTOPRIL [Concomitant]
     Dosage: 75 MG
  3. PRADAXA [Suspect]
     Indication: ATRIAL FIBRILLATION
     Dosage: 220 MG
     Dates: start: 20110629, end: 20110818
  4. CARVEDILOL [Concomitant]
     Dosage: 12.5 MG
  5. SIMVASTATIN [Concomitant]
     Dosage: 40 MG

REACTIONS (2)
  - HAEMORRHAGE INTRACRANIAL [None]
  - FALL [None]
